FAERS Safety Report 22093409 (Version 2)
Quarter: 2023Q1

REPORT INFORMATION
  Report Type: Spontaneous
  Country: BE (occurrence: BE)
  Receive Date: 20230314
  Receipt Date: 20230314
  Transmission Date: 20230417
  Serious: Yes (Hospitalization, Disabling, Other)
  Sender: FDA-Public Use
  Company Number: None

PATIENT
  Age: 78 Year
  Sex: Male
  Weight: 81.8 kg

DRUGS (15)
  1. MEKINIST [Suspect]
     Active Substance: TRAMETINIB DIMETHYL SULFOXIDE
     Indication: Malignant melanoma
     Dosage: 1 DOSAGE FORM, QD (STRENGTH: 2 MG)
     Route: 065
     Dates: start: 20230104, end: 20230113
  2. MEKINIST [Suspect]
     Active Substance: TRAMETINIB DIMETHYL SULFOXIDE
     Dosage: 3 DOSAGE FORM, QD (STRENGTH: 0.5 MG)
     Route: 048
     Dates: start: 20230118, end: 20230220
  3. TAFINLAR [Suspect]
     Active Substance: DABRAFENIB MESYLATE
     Indication: Malignant melanoma
     Dosage: 4 DOSAGE FORM, QD (2 TABLETS TWICE PER DAY) (FORMULATION TABLET) (STRENGTH 75 MG)
     Route: 065
     Dates: start: 20230104, end: 20230113
  4. TAFINLAR [Suspect]
     Active Substance: DABRAFENIB MESYLATE
     Dosage: 4 DOSAGE FORM, QD (2 TABLETS TWICE PER DAY) (STRENGTH 50 MG)
     Route: 048
     Dates: start: 20230118
  5. PLAQUENIL [Concomitant]
     Active Substance: HYDROXYCHLOROQUINE SULFATE
     Indication: Product used for unknown indication
     Dosage: 1.5 DOSAGE FORM, QD (1.5 TABLET IN THE MORNING)
     Route: 065
  6. PROTOPIC [Concomitant]
     Active Substance: TACROLIMUS
     Indication: Dermatitis
     Dosage: UNK, PRN
     Route: 065
  7. RIBES NIGRUM [Concomitant]
     Indication: Product used for unknown indication
     Dosage: 35 DRP, QD
     Route: 065
  8. LERCANIDIPINE [Concomitant]
     Active Substance: LERCANIDIPINE
     Indication: Product used for unknown indication
     Dosage: 0.5 DOSAGE FORM, QD
     Route: 065
  9. HYDROCHLOROTHIAZIDE\LOSARTAN POTASSIUM [Concomitant]
     Active Substance: HYDROCHLOROTHIAZIDE\LOSARTAN POTASSIUM
     Indication: Product used for unknown indication
     Dosage: 1 DOSAGE FORM, QD
     Route: 065
  10. TAMSULOSIN HYDROCHLORIDE [Concomitant]
     Active Substance: TAMSULOSIN HYDROCHLORIDE
     Indication: Product used for unknown indication
     Dosage: 1 DOSAGE FORM, QD
     Route: 065
  11. PANTOMED [Concomitant]
     Indication: Product used for unknown indication
     Dosage: 1 DOSAGE FORM, QD
     Route: 065
  12. SIMVASTATIN [Concomitant]
     Active Substance: SIMVASTATIN
     Indication: Product used for unknown indication
     Dosage: 1 DOSAGE FORM, QD
     Route: 065
  13. CALCIUM CARBONATE [Concomitant]
     Active Substance: CALCIUM CARBONATE
     Indication: Product used for unknown indication
     Dosage: 1250 MG, QD (1 TAB/EVENING)
     Route: 065
  14. MEDROL [Concomitant]
     Active Substance: METHYLPREDNISOLONE
     Indication: Product used for unknown indication
     Dosage: 2 MG, QD
     Route: 065
  15. GLUCOSAMINE [Concomitant]
     Active Substance: GLUCOSAMINE
     Indication: Product used for unknown indication
     Dosage: 2 DOSAGE FORM, QD (1 TABLET TWICE PER DAY)
     Route: 065

REACTIONS (8)
  - Fall [Recovering/Resolving]
  - Nausea [Recovering/Resolving]
  - Ejection fraction decreased [Recovering/Resolving]
  - Vomiting [Recovering/Resolving]
  - Fatigue [Recovering/Resolving]
  - Asthenia [Recovering/Resolving]
  - Constipation [Recovering/Resolving]
  - Hypotension [Recovering/Resolving]

NARRATIVE: CASE EVENT DATE: 20230113
